FAERS Safety Report 22209526 (Version 1)
Quarter: 2023Q2

REPORT INFORMATION
  Report Type: Spontaneous
  Country: HK (occurrence: HK)
  Receive Date: 20230414
  Receipt Date: 20230414
  Transmission Date: 20230722
  Serious: Yes (Hospitalization)
  Sender: FDA-Public Use
  Company Number: HK-STRIDES ARCOLAB LIMITED-2023SP005289

PATIENT
  Sex: Female

DRUGS (2)
  1. POTASSIUM CHLORIDE [Suspect]
     Active Substance: POTASSIUM CHLORIDE
     Indication: Product used for unknown indication
     Dosage: UNK (EXTENDED RELEASED TABLET; TOTAL 30 TABLETS )
     Route: 048
  2. SUCCINYLCHOLINE [Suspect]
     Active Substance: SUCCINYLCHOLINE
     Indication: Hypotonia
     Dosage: UNK
     Route: 065

REACTIONS (3)
  - Intentional product misuse [Unknown]
  - Hyperkalaemia [Recovered/Resolved]
  - Intentional overdose [Unknown]
